FAERS Safety Report 7235515-4 (Version None)
Quarter: 2011Q1

REPORT INFORMATION
  Report Type: 
  Country: None (occurrence: None)
  Receive Date: 20110120
  Receipt Date: 20110107
  Transmission Date: 20110831
  Serious: Yes (Hospitalization)
  Sender: FDA-Public Use
  Company Number: IT-ELI_LILLY_AND_COMPANY-IT201101001605

PATIENT
  Sex: Male

DRUGS (2)
  1. GEMZAR [Suspect]
     Indication: LUNG NEOPLASM MALIGNANT
     Dosage: 1450 MG, PER CYCLE
     Route: 042
     Dates: start: 20100727, end: 20101122
  2. CARBOPLATIN [Concomitant]
     Indication: LUNG NEOPLASM MALIGNANT
     Dosage: 270 MG, PER CYCLE
     Route: 042
     Dates: start: 20100727, end: 20101122

REACTIONS (2)
  - C-REACTIVE PROTEIN INCREASED [None]
  - PANCYTOPENIA [None]
